FAERS Safety Report 7356155-2 (Version None)
Quarter: 2011Q1

REPORT INFORMATION
  Report Type: 
  Country: None (occurrence: None)
  Receive Date: 20110316
  Receipt Date: 20110309
  Transmission Date: 20110831
  Serious: Yes (Death)
  Sender: FDA-Public Use
  Company Number: PL-BAXTER-2011BH005879

PATIENT
  Age: 59 Year
  Sex: Female
  Weight: 78 kg

DRUGS (11)
  1. INSULIN HUMAN INJECTION, ISOPHANE [Concomitant]
     Indication: DIABETES MELLITUS
     Route: 058
     Dates: start: 20081006, end: 20110308
  2. BISOPROLOL [Concomitant]
     Indication: CORONARY ARTERY DISEASE
     Route: 048
     Dates: start: 20081006, end: 20110308
  3. ACARD [Concomitant]
     Indication: CORONARY ARTERY DISEASE
     Route: 048
     Dates: start: 20081006, end: 20110308
  4. ENARENAL [Concomitant]
     Indication: CARDIAC FAILURE
     Route: 048
     Dates: start: 20081006, end: 20110308
  5. ACTRAPID INSULIN NOVO [Concomitant]
     Indication: DIABETES MELLITUS
     Route: 058
     Dates: start: 20081006, end: 20110308
  6. LOSARTAN [Concomitant]
     Indication: CARDIAC FAILURE
     Route: 048
     Dates: start: 20081006, end: 20110308
  7. DIANEAL [Suspect]
     Indication: PERITONEAL DIALYSIS
     Route: 033
  8. DIANEAL [Suspect]
     Route: 033
  9. EXTRANEAL [Suspect]
     Indication: PERITONEAL DIALYSIS
     Route: 033
  10. CLOPIDOGREL [Concomitant]
     Indication: CORONARY ARTERY DISEASE
     Route: 048
     Dates: start: 20081006, end: 20110308
  11. ZOXON [Concomitant]
     Indication: HYPERTENSION
     Route: 048
     Dates: start: 20081006, end: 20110308

REACTIONS (1)
  - DEATH [None]
